FAERS Safety Report 5523225-0 (Version None)
Quarter: 2007Q4

REPORT INFORMATION
  Report Type: 
  Country: None (occurrence: None)
  Receive Date: 20071121
  Receipt Date: 20071116
  Transmission Date: 20080405
  Serious: Yes (Death)
  Sender: FDA-Public Use
  Company Number: JP-BRISTOL-MYERS SQUIBB COMPANY-13986716

PATIENT
  Age: 46 Year
  Sex: Female

DRUGS (11)
  1. PARAPLATIN [Suspect]
     Indication: LYMPHOMA
     Route: 041
  2. CYCLOPHOSPHAMIDE [Suspect]
     Indication: LYMPHOMA
     Route: 042
  3. BLEOMYCIN [Suspect]
     Route: 042
  4. IFOMIDE [Suspect]
     Route: 042
  5. ETOPOSIDE [Suspect]
  6. ONCOVIN [Suspect]
     Route: 042
  7. METHYLPREDNISOLONE SODIUM SUCCINATE [Concomitant]
  8. DOXORUBICIN HCL [Concomitant]
     Route: 042
  9. LASTET [Concomitant]
     Route: 042
  10. NOVANTRONE [Concomitant]
     Route: 042
  11. CYTARABINE [Concomitant]
     Route: 042

REACTIONS (1)
  - SEPSIS [None]
